FAERS Safety Report 7473498-2 (Version None)
Quarter: 2011Q2

REPORT INFORMATION
  Report Type: 
  Country: None (occurrence: None)
  Receive Date: 20110511
  Receipt Date: 20110510
  Transmission Date: 20111010
  Serious: No
  Sender: FDA-Public Use
  Company Number: US-ABBOTT-11P-163-0714664-00

PATIENT
  Sex: Female
  Weight: 62.652 kg

DRUGS (6)
  1. PREMARIN [Concomitant]
     Indication: PRODUCT USED FOR UNKNOWN INDICATION
  2. LUPRON DEPOT [Suspect]
     Indication: ENDOMETRIOSIS
     Dosage: ONCE
     Dates: start: 20101101, end: 20101201
  3. LUPRON DEPOT [Suspect]
     Dates: start: 20110301
  4. LUPRON DEPOT [Suspect]
     Indication: ENDOMETRIOSIS
     Dates: start: 20101201
  5. LUPRON DEPOT [Suspect]
     Dosage: ONCE
     Dates: start: 20110301, end: 20110401
  6. NORETHINDRONE [Concomitant]
     Indication: HORMONE REPLACEMENT THERAPY

REACTIONS (3)
  - RASH PRURITIC [None]
  - HEADACHE [None]
  - VAGINAL HAEMORRHAGE [None]
